FAERS Safety Report 8841708 (Version 1)
Quarter: 2012Q4

REPORT INFORMATION
  Report Type: Spontaneous
  Country: US (occurrence: None)
  Receive Date: 20121011
  Receipt Date: 20121011
  Transmission Date: 20130627
  Serious: Yes (Life-Threatening)
  Sender: FDA-Public Use
  Company Number: 001366141A

PATIENT
  Age: 13 Year
  Sex: Female

DRUGS (2)
  1. PROACTIV RENEWING CLEANSER [Suspect]
     Dosage: once dermal
     Dates: start: 20120825
  2. PROACTIV REPAIRING TREATMENT [Suspect]
     Dates: start: 20120825

REACTIONS (5)
  - Erythema [None]
  - Eye swelling [None]
  - Lip swelling [None]
  - Dyspnoea [None]
  - Dysphagia [None]
